FAERS Safety Report 17696997 (Version 3)
Quarter: 2020Q2

REPORT INFORMATION
  Report Type: Spontaneous
  Country: BE (occurrence: BE)
  Receive Date: 20200423
  Receipt Date: 20200520
  Transmission Date: 20200714
  Serious: Yes (Hospitalization, Other)
  Sender: FDA-Public Use
  Company Number: BE-ADVANZ PHARMA-202004003502

PATIENT

DRUGS (7)
  1. HYDROXYCHLOROQUINE [Suspect]
     Active Substance: HYDROXYCHLOROQUINE
     Indication: PRODUCT USE IN UNAPPROVED INDICATION
     Dosage: 400 MG, BID, FILM-COATED TABLET
     Route: 048
     Dates: start: 20200329, end: 202003
  2. HYDROXYCHLOROQUINE [Suspect]
     Active Substance: HYDROXYCHLOROQUINE
     Indication: COVID-19
     Dosage: 200 MG, BID, FILM-COATED TABLET
     Route: 048
     Dates: start: 202003, end: 20200331
  3. HALDOL [Concomitant]
     Active Substance: HALOPERIDOL
     Dosage: UNK
     Dates: start: 20200330
  4. DAFALGAN FORTE [Concomitant]
     Dosage: 1 G
     Dates: start: 20200331
  5. FRAXIPARINE [Concomitant]
     Active Substance: NADROPARIN CALCIUM
     Dosage: UNK
     Dates: start: 20200330
  6. PARACETAMOL [Concomitant]
     Active Substance: ACETAMINOPHEN
     Dosage: 1 UNK
     Dates: start: 20200330
  7. MORPHINE [Concomitant]
     Active Substance: MORPHINE
     Dosage: 10 MG/ML
     Dates: start: 20200330

REACTIONS (3)
  - Off label use [Unknown]
  - Condition aggravated [Recovered/Resolved]
  - Rhabdomyolysis [Recovered/Resolved]

NARRATIVE: CASE EVENT DATE: 20200329
